FAERS Safety Report 20800531 (Version 10)
Quarter: 2024Q3

REPORT INFORMATION
  Report Type: Report from Study
  Country: DE (occurrence: DE)
  Receive Date: 20220509
  Receipt Date: 20240918
  Transmission Date: 20241017
  Serious: Yes (Hospitalization)
  Sender: ROCHE
  Company Number: DE-ROCHE-2555937

PATIENT
  Age: 55 Year
  Sex: Female

DRUGS (15)
  1. OCREVUS [Suspect]
     Active Substance: OCRELIZUMAB
     Indication: Primary progressive multiple sclerosis
     Route: 042
     Dates: start: 20200212
  2. OCREVUS [Suspect]
     Active Substance: OCRELIZUMAB
     Indication: Secondary progressive multiple sclerosis
     Route: 042
     Dates: start: 20200226
  3. OCREVUS [Suspect]
     Active Substance: OCRELIZUMAB
     Indication: Progressive relapsing multiple sclerosis
     Route: 042
     Dates: start: 20200827
  4. OCREVUS [Suspect]
     Active Substance: OCRELIZUMAB
     Route: 042
     Dates: start: 20210628
  5. CORTISONE [Suspect]
     Active Substance: CORTISONE
     Indication: Premedication
     Route: 065
  6. NABIXIMOLS [Suspect]
     Active Substance: NABIXIMOLS
     Indication: Product used for unknown indication
     Route: 065
  7. NABIXIMOLS [Suspect]
     Active Substance: NABIXIMOLS
     Dosage: 1/8 TABLET AS REQUIRED
     Route: 065
  8. COMIRNATY (TOZINAMERAN) [Suspect]
     Active Substance: TOZINAMERAN
     Indication: COVID-19 prophylaxis
     Dosage: FIRST VACCINATION
     Route: 065
  9. COMIRNATY (TOZINAMERAN) [Suspect]
     Active Substance: TOZINAMERAN
     Route: 065
     Dates: start: 20210507
  10. DIETHYLSTILBESTROL [Suspect]
     Active Substance: DIETHYLSTILBESTROL
     Indication: Osteoporosis
     Route: 065
  11. PANTOPRAZOLE SODIUM [Concomitant]
     Active Substance: PANTOPRAZOLE SODIUM
     Dosage: FREQUENCY TEXT:AS REQUIRED
  12. CANNABIDIOL\HERBALS [Concomitant]
     Active Substance: CANNABIDIOL\HERBALS
  13. DRONABINOL [Concomitant]
     Active Substance: DRONABINOL
     Dosage: AT NIGHT
     Dates: start: 2020
  14. CHOLECALCIFEROL [Concomitant]
     Active Substance: CHOLECALCIFEROL
  15. ROSICED [Concomitant]

REACTIONS (54)
  - Sleep disorder [Recovering/Resolving]
  - Asthenia [Recovering/Resolving]
  - Hot flush [Recovered/Resolved]
  - Blood pressure decreased [Recovered/Resolved]
  - Uhthoff^s phenomenon [Unknown]
  - Mouth haemorrhage [Recovered/Resolved]
  - Thermal burn [Recovered/Resolved]
  - Palpitations [Recovered/Resolved]
  - Middle insomnia [Recovered/Resolved]
  - Fall [Unknown]
  - Clavicle fracture [Recovered/Resolved]
  - Fatigue [Recovered/Resolved]
  - Hot flush [Recovered/Resolved]
  - Haematoma [Recovered/Resolved]
  - Inflammation [Not Recovered/Not Resolved]
  - Osteoporosis [Recovered/Resolved]
  - Vitamin D decreased [Unknown]
  - Gamma-glutamyltransferase increased [Recovered/Resolved]
  - Blood cholesterol increased [Not Recovered/Not Resolved]
  - Mean cell volume increased [Recovered/Resolved]
  - Mean cell haemoglobin decreased [Recovered/Resolved]
  - Mean cell haemoglobin concentration decreased [Not Recovered/Not Resolved]
  - Lymphocyte count decreased [Not Recovered/Not Resolved]
  - Muscle spasticity [Recovered/Resolved]
  - Musculoskeletal stiffness [Recovered/Resolved]
  - Low density lipoprotein increased [Not Recovered/Not Resolved]
  - High density lipoprotein increased [Not Recovered/Not Resolved]
  - Injection site pain [Recovered/Resolved]
  - Asthenia [Not Recovered/Not Resolved]
  - Headache [Recovered/Resolved]
  - Listless [Recovered/Resolved]
  - Blood potassium decreased [Recovered/Resolved]
  - Hypotension [Not Recovered/Not Resolved]
  - Lethargy [Recovered/Resolved]
  - Chromaturia [Recovered/Resolved]
  - Vitamin B6 increased [Not Recovered/Not Resolved]
  - Monocyte count increased [Not Recovered/Not Resolved]
  - Alpha 1 globulin decreased [Recovered/Resolved]
  - Immunoglobulins decreased [Recovered/Resolved]
  - Blood albumin increased [Recovered/Resolved]
  - Protein total decreased [Recovered/Resolved]
  - Abdominal pain [Not Recovered/Not Resolved]
  - Depression [Unknown]
  - Contusion [Unknown]
  - COVID-19 [Recovered/Resolved]
  - Nausea [Recovered/Resolved]
  - Telangiectasia [Unknown]
  - Rosacea [Unknown]
  - Insomnia [Not Recovered/Not Resolved]
  - Cough [Recovered/Resolved]
  - Throat irritation [Recovered/Resolved]
  - Cystitis noninfective [Recovered/Resolved]
  - Cognitive disorder [Not Recovered/Not Resolved]
  - Gait disturbance [Not Recovered/Not Resolved]

NARRATIVE: CASE EVENT DATE: 20200212
